FAERS Safety Report 8538501-7 (Version None)
Quarter: 2012Q3

REPORT INFORMATION
  Report Type: 
  Country: None (occurrence: None)
  Receive Date: 20120718
  Receipt Date: 20120718
  Transmission Date: 20120928
  Serious: Yes (Life-Threatening)
  Sender: FDA-Public Use
  Company Number: None

PATIENT
  Age: 48 Year
  Sex: Female
  Weight: 102.0593 kg

DRUGS (1)
  1. CEFUROXIME [Suspect]
     Indication: SINUSITIS
     Dosage: ONE PILL (ORAL) 2 X DAILY
     Route: 048
     Dates: start: 20120622

REACTIONS (7)
  - SWELLING FACE [None]
  - DYSPNOEA [None]
  - DRUG HYPERSENSITIVITY [None]
  - HYPOTENSION [None]
  - PRURITUS [None]
  - LOSS OF CONSCIOUSNESS [None]
  - LIP SWELLING [None]
